FAERS Safety Report 25071277 (Version 1)
Quarter: 2025Q1

REPORT INFORMATION
  Report Type: Spontaneous
  Country: AR (occurrence: AR)
  Receive Date: 20250312
  Receipt Date: 20250312
  Transmission Date: 20250408
  Serious: No
  Sender: PFIZER
  Company Number: AR-PFIZER INC-202500053344

PATIENT
  Age: 24 Year
  Sex: Female

DRUGS (1)
  1. GENOTROPIN [Suspect]
     Active Substance: SOMATROPIN
     Indication: Growth hormone deficiency
     Dosage: 0.7 MG, DAILY
     Dates: start: 20230804, end: 20250307

REACTIONS (2)
  - Drug dose omission by device [Unknown]
  - Device power source issue [Unknown]

NARRATIVE: CASE EVENT DATE: 20250306
